FAERS Safety Report 16045891 (Version 4)
Quarter: 2019Q1

REPORT INFORMATION
  Report Type: Report from Study
  Country: US (occurrence: US)
  Receive Date: 20190307
  Receipt Date: 20190322
  Transmission Date: 20190418
  Serious: Yes (Hospitalization)
  Sender: FDA-Public Use
  Company Number: US-SA-2019SA056913

PATIENT
  Age: 31 Year
  Sex: Male

DRUGS (1)
  1. ALEMTUZUMAB [Suspect]
     Active Substance: ALEMTUZUMAB
     Indication: MULTIPLE SCLEROSIS
     Dosage: 12 MG, QD
     Route: 041
     Dates: start: 20190225, end: 20190225

REACTIONS (10)
  - Somnolence [Unknown]
  - Pyrexia [Unknown]
  - Rhinorrhoea [Recovered/Resolved]
  - Blood lactic acid increased [Unknown]
  - Tachycardia [Unknown]
  - Pallor [Unknown]
  - Sinus tachycardia [Unknown]
  - Tremor [Recovered/Resolved]
  - Confusional state [Unknown]
  - Vital functions abnormal [Unknown]

NARRATIVE: CASE EVENT DATE: 20190225
